FAERS Safety Report 12956538 (Version 1)
Quarter: 2016Q4

REPORT INFORMATION
  Report Type: Spontaneous
  Country: CA (occurrence: CA)
  Receive Date: 20161118
  Receipt Date: 20161118
  Transmission Date: 20170207
  Serious: Yes (Other)
  Sender: FDA-Public Use
  Company Number: CA-NOVOPROD-518903

PATIENT
  Age: 66 Year
  Sex: Female
  Weight: 73 kg

DRUGS (1)
  1. VAGIFEM [Suspect]
     Active Substance: ESTRADIOL
     Indication: ATROPHIC VULVOVAGINITIS
     Dosage: BID ( THERAPY DURATION: 9 DAYS)
     Route: 067

REACTIONS (6)
  - Feeling of body temperature change [Recovered/Resolved]
  - Malaise [Recovered/Resolved]
  - Vulvovaginal burning sensation [Recovered/Resolved]
  - Chills [Recovered/Resolved]
  - Furuncle [Recovered/Resolved]
  - Nipple swelling [Recovered/Resolved]
